FAERS Safety Report 5925868-9 (Version None)
Quarter: 2008Q4

REPORT INFORMATION
  Report Type: 
  Country: None (occurrence: None)
  Receive Date: 20081021
  Receipt Date: 20081010
  Transmission Date: 20090506
  Serious: Yes (Hospitalization)
  Sender: FDA-Public Use
  Company Number: US-PFIZER INC-2008071324

PATIENT
  Sex: Female
  Weight: 99 kg

DRUGS (9)
  1. SU-011,248 [Suspect]
     Indication: BREAST CANCER
     Route: 048
     Dates: start: 20080710, end: 20080815
  2. SU-011,248 [Suspect]
     Dosage: DAILY DOSE:37.5MG
     Route: 048
     Dates: start: 20080816, end: 20080825
  3. TAXOL [Suspect]
     Indication: BREAST CANCER
     Route: 042
     Dates: start: 20080710, end: 20080825
  4. ZOLOFT [Concomitant]
     Route: 048
     Dates: start: 20000927
  5. SYNTHROID [Concomitant]
     Route: 048
     Dates: start: 20000927
  6. CELEBREX [Concomitant]
     Route: 048
     Dates: start: 20080809
  7. LORTAB [Concomitant]
     Route: 048
     Dates: start: 20080610
  8. ZANTAC [Concomitant]
     Route: 048
     Dates: start: 20080710
  9. XANAX [Concomitant]
     Route: 048
     Dates: start: 20080529

REACTIONS (1)
  - OESOPHAGEAL PERFORATION [None]
